FAERS Safety Report 5355976-5 (Version None)
Quarter: 2007Q2

REPORT INFORMATION
  Report Type: 
  Country: None (occurrence: None)
  Receive Date: 20070613
  Receipt Date: 20070611
  Transmission Date: 20071010
  Serious: Yes (Other)
  Sender: FDA-Public Use
  Company Number: NL-BRISTOL-MYERS SQUIBB COMPANY-13810569

PATIENT
  Age: 70 Year
  Sex: Male
  Weight: 70 kg

DRUGS (4)
  1. SELECTIN [Suspect]
     Indication: HYPERCHOLESTEROLAEMIA
     Dates: start: 20050616
  2. SOTALOL HYDROCHLORIDE [Concomitant]
  3. FLECAINIDE ACETATE [Concomitant]
  4. CARBASALATE CALCIUM [Concomitant]

REACTIONS (1)
  - CRYPTOGENIC ORGANISING PNEUMONIA [None]
